FAERS Safety Report 12105536 (Version 1)
Quarter: 2016Q1

REPORT INFORMATION
  Report Type: Spontaneous
  Country: FI (occurrence: FI)
  Receive Date: 20160223
  Receipt Date: 20160223
  Transmission Date: 20160526
  Serious: Yes (Other)
  Sender: FDA-Public Use
  Company Number: FI-BIOGEN-2016BI00192329

PATIENT
  Age: 30 Year
  Sex: Male

DRUGS (1)
  1. AVONEX [Suspect]
     Active Substance: INTERFERON BETA-1A
     Indication: MULTIPLE SCLEROSIS
     Route: 030
     Dates: end: 2009

REACTIONS (4)
  - Glioma [Unknown]
  - Adverse drug reaction [Unknown]
  - Alanine aminotransferase increased [Unknown]
  - Hereditary motor and sensory neuropathy [Unknown]

NARRATIVE: CASE EVENT DATE: 201305
